FAERS Safety Report 10045411 (Version 1)
Quarter: 2014Q1

REPORT INFORMATION
  Report Type: Spontaneous
  Country: US (occurrence: None)
  Receive Date: 20140306
  Receipt Date: 20140306
  Transmission Date: 20141002
  Serious: Yes (Hospitalization)
  Sender: FDA-Public Use
  Company Number: 163-21880-13064181

PATIENT
  Age: 78 Year
  Sex: Female

DRUGS (4)
  1. REVLIMID [Suspect]
     Indication: MYELODYSPLASTIC SYNDROME
     Dosage: 10MG, 1 IN 1 D, PO
     Route: 048
     Dates: start: 201201
  2. PROBIOTIC (BIFIDOBACTERIUM LACTS) (CAPSULES) [Concomitant]
  3. VITAMIN D3 (COLECALCIFEROL) (TABLETS) [Concomitant]
  4. VITAMIN B12 (CYANOCOBALAMIN) (TABLETS) [Concomitant]

REACTIONS (1)
  - Cerebrovascular accident [None]
